FAERS Safety Report 13762374 (Version 1)
Quarter: 2017Q3

REPORT INFORMATION
  Report Type: Spontaneous
  Country: US (occurrence: US)
  Receive Date: 20170717
  Receipt Date: 20170717
  Transmission Date: 20171127
  Serious: Yes (Other)
  Sender: FDA-Public Use
  Company Number: None

PATIENT
  Age: 39 Year
  Sex: Female
  Weight: 56.7 kg

DRUGS (4)
  1. VITAMINS [Concomitant]
     Active Substance: VITAMINS
  2. DELSYM [Suspect]
     Active Substance: DEXTROMETHORPHAN
     Indication: COUGH
     Dosage: ?          OTHER STRENGTH:MG;QUANTITY:10 ML;?
     Route: 048
     Dates: start: 20170630, end: 20170703
  3. BIRTH CONTROL [Concomitant]
     Active Substance: UNSPECIFIED INGREDIENT
  4. STERIODS MEDICATIONS [Concomitant]

REACTIONS (4)
  - Urticaria [None]
  - Rash pruritic [None]
  - Pruritus [None]
  - Wound [None]

NARRATIVE: CASE EVENT DATE: 20170702
